FAERS Safety Report 6131479-5 (Version None)
Quarter: 2009Q1

REPORT INFORMATION
  Report Type: 
  Country: None (occurrence: None)
  Receive Date: 20090325
  Receipt Date: 20080813
  Transmission Date: 20090719
  Serious: No
  Sender: FDA-Public Use
  Company Number: US-BRISTOL-MYERS SQUIBB COMPANY-14301964

PATIENT
  Age: 63 Year
  Sex: Male

DRUGS (5)
  1. ERBITUX [Suspect]
     Indication: HEAD AND NECK CANCER
  2. HYDROCODONE BITARTRATE [Concomitant]
     Route: 048
  3. BENADRYL [Concomitant]
     Route: 042
  4. NAPROXEN [Concomitant]
     Route: 048
  5. RADIATION THERAPY [Concomitant]

REACTIONS (2)
  - FLUSHING [None]
  - PRURITUS [None]
